FAERS Safety Report 5651387-3 (Version None)
Quarter: 2008Q1

REPORT INFORMATION
  Report Type: 
  Country: None (occurrence: None)
  Receive Date: 20080305
  Receipt Date: 20080304
  Transmission Date: 20080703
  Serious: Yes (Other)
  Sender: FDA-Public Use
  Company Number: FR-JNJFOC-20071103945

PATIENT
  Sex: Female
  Weight: 93 kg

DRUGS (8)
  1. REMINYL LP [Suspect]
     Indication: VASCULAR DEMENTIA
     Route: 048
  2. CACIT D3 [Suspect]
     Indication: CALCIUM DEFICIENCY
     Route: 048
  3. LOXEN [Concomitant]
     Indication: HYPERTENSION
     Route: 048
  4. LOSARTAN POTASSIUM AND HYDROCHLOROTHIAZIDE [Concomitant]
     Indication: HYPERTENSION
     Route: 048
  5. BISOPROLOL FUMARATE [Concomitant]
     Indication: HYPERTENSION
     Route: 048
  6. DIFFU K [Concomitant]
     Indication: HYPOKALAEMIA
     Route: 048
  7. ZOLPIDEM [Concomitant]
     Indication: SLEEP DISORDER
     Route: 048
  8. COUMADIN [Concomitant]
     Indication: THROMBOSIS PROPHYLAXIS
     Route: 048

REACTIONS (1)
  - URTICARIA [None]
